FAERS Safety Report 7775571-8 (Version None)
Quarter: 2011Q3

REPORT INFORMATION
  Report Type: 
  Country: None (occurrence: None)
  Receive Date: 20110923
  Receipt Date: 20110920
  Transmission Date: 20111222
  Serious: Yes (Hospitalization)
  Sender: FDA-Public Use
  Company Number: DE-ABBOTT-11P-062-0856330-00

PATIENT
  Age: 73 Year
  Sex: Female

DRUGS (3)
  1. PREDNISOLONE [Concomitant]
     Indication: RHEUMATOID ARTHRITIS
  2. HUMIRA [Suspect]
     Indication: RHEUMATOID ARTHRITIS
     Route: 058
     Dates: start: 20070101, end: 20110301
  3. METHOTREXATE [Concomitant]
     Indication: RHEUMATOID ARTHRITIS
     Dosage: 7.5 MG PER WEEK

REACTIONS (3)
  - ACCIDENT [None]
  - HIP SURGERY [None]
  - URINARY TRACT INFECTION [None]
